FAERS Safety Report 9611068 (Version 1)
Quarter: 2013Q4

REPORT INFORMATION
  Report Type: Spontaneous
  Country: US (occurrence: US)
  Receive Date: 20131009
  Receipt Date: 20131009
  Transmission Date: 20140711
  Serious: Yes (Other)
  Sender: FDA-Public Use
  Company Number: US-ALLERGAN-1315518US

PATIENT
  Age: 72 Year
  Sex: Female

DRUGS (18)
  1. ALPHAGAN P [Suspect]
     Indication: INTRAOCULAR PRESSURE TEST
     Dosage: 2 GTT, QHS
     Route: 047
     Dates: start: 201303
  2. LUMIGAN [Suspect]
     Indication: INTRAOCULAR PRESSURE TEST
  3. REFRESH PLUS [Concomitant]
     Indication: DRY EYE
  4. ERYTHROMYCIN OPHTHALMIC OINTMENT [Concomitant]
     Indication: LACRIMAL DISORDER
  5. ACCUPRIL [Concomitant]
     Indication: HYPERTENSION
     Dosage: 40 MG, PO QD
     Route: 048
  6. ATENOLOL [Concomitant]
     Indication: HYPERTENSION
     Dosage: 150 MG, PO BID
     Route: 048
  7. CLONIDINE HCL [Concomitant]
     Indication: HYPERTENSION
     Dosage: 0.12 MG, PO QAM
     Route: 048
  8. CLONIDINE HCL [Concomitant]
     Dosage: 0.02 MG, QAM
     Route: 048
  9. HYDROCHLOROTHIAZIDE [Concomitant]
     Indication: HYPERTENSION
     Dosage: 12.5 MG, 3 TABLETS PO QD
     Route: 048
  10. WARFARIN [Concomitant]
     Indication: ATRIAL FIBRILLATION
     Dosage: 5 MG, PO QD FOR 7 DAYS A WEEK
     Route: 048
  11. DIGOXIN [Concomitant]
     Indication: ATRIAL FIBRILLATION
     Dosage: 125 MG, QD
     Route: 048
  12. POTASSIUM [Concomitant]
     Indication: PRODUCT USED FOR UNKNOWN INDICATION
     Dosage: 10 MG, PO QD
     Route: 048
  13. JANUMET [Concomitant]
     Indication: DIABETES MELLITUS
     Dosage: 50/500/2 TABS PO QD
     Route: 048
  14. CENTRUM SILVER [Concomitant]
     Indication: PRODUCT USED FOR UNKNOWN INDICATION
  15. VITAMIN E [Concomitant]
     Indication: PRODUCT USED FOR UNKNOWN INDICATION
     Dosage: 200 IU, QD
     Route: 048
  16. VITAMIN C [Concomitant]
     Indication: PRODUCT USED FOR UNKNOWN INDICATION
     Dosage: 250 MG, QD
     Route: 048
  17. FISH OIL OMEGA 3 [Concomitant]
     Indication: PRODUCT USED FOR UNKNOWN INDICATION
     Dosage: 12 MG, BID
  18. GENERIC GENTLE LUBRICANT NOS [Concomitant]
     Indication: DRY EYE

REACTIONS (4)
  - Cataract [Recovered/Resolved]
  - Middle insomnia [Unknown]
  - Vision blurred [Recovering/Resolving]
  - Eye irritation [Unknown]
